FAERS Safety Report 4391416-0 (Version None)
Quarter: 2004Q3

REPORT INFORMATION
  Report Type: 
  Country: None (occurrence: None)
  Receive Date: 20040707
  Receipt Date: 20040701
  Transmission Date: 20050211
  Serious: Yes (Death)
  Sender: FDA-Public Use
  Company Number: GBPFL-S-20040016

PATIENT
  Age: 70 Year
  Sex: Male

DRUGS (1)
  1. NAVELBINE [Suspect]
     Indication: CHRONIC LYMPHOCYTIC LEUKAEMIA
     Dosage: 1MG CYCLIC
     Route: 042

REACTIONS (1)
  - DEATH [None]
